FAERS Safety Report 24432647 (Version 3)
Quarter: 2024Q4

REPORT INFORMATION
  Report Type: Spontaneous
  Country: CA (occurrence: CA)
  Receive Date: 20241014
  Receipt Date: 20241205
  Transmission Date: 20250115
  Serious: Yes (Other)
  Sender: PFIZER
  Company Number: CA-PFIZER INC-202400236723

PATIENT
  Age: 67 Year
  Sex: Female
  Weight: 52 kg

DRUGS (3)
  1. RUXIENCE [Suspect]
     Active Substance: RITUXIMAB-PVVR
     Indication: Rheumatoid arthritis
     Dosage: 1000 MG, DAY 1 AND DAY 15, THEN DAY 1 ONLY
     Route: 042
     Dates: start: 2024
  2. RUXIENCE [Suspect]
     Active Substance: RITUXIMAB-PVVR
     Dosage: 1000 MG, DAY 1, (1000 MG, DAY 1 AND DAY 15, THEN DAY 1 ONLY)
     Route: 042
     Dates: start: 20241008
  3. RUXIENCE [Suspect]
     Active Substance: RITUXIMAB-PVVR
     Dosage: 1000 MG, 1 WEEK AND 6 DAYS (DAY 1 AND DAY 15, THEN DAY 1 ONLY )
     Route: 042
     Dates: start: 20241021

REACTIONS (6)
  - Monoplegia [Unknown]
  - Limb discomfort [Unknown]
  - Nausea [Unknown]
  - Off label use [Unknown]
  - Nausea [Recovered/Resolved]
  - Fatigue [Recovered/Resolved]

NARRATIVE: CASE EVENT DATE: 20240101
